FAERS Safety Report 9211091 (Version 2)
Quarter: 2013Q2

REPORT INFORMATION
  Report Type: Spontaneous
  Country: AU (occurrence: AU)
  Receive Date: 20130404
  Receipt Date: 20130423
  Transmission Date: 20140414
  Serious: Yes (Death, Hospitalization, Other)
  Sender: FDA-Public Use
  Company Number: AU-B.I. PHARMACEUTICALS,INC./RIDGEFIELD-2013-AU-00403AU

PATIENT
  Sex: Male

DRUGS (3)
  1. FERROGRADUMET [Concomitant]
  2. PLAVIX [Concomitant]
  3. PRADAXA [Suspect]

REACTIONS (5)
  - Cardiac failure [Fatal]
  - Retroperitoneal haemorrhage [Fatal]
  - Cardiac complication associated with device [Unknown]
  - Ventricular tachycardia [Unknown]
  - Cardioversion [Unknown]
